FAERS Safety Report 10515796 (Version 2)
Quarter: 2016Q4

REPORT INFORMATION
  Report Type: Spontaneous
  Country: US (occurrence: US)
  Receive Date: 20141014
  Receipt Date: 20161123
  Transmission Date: 20170206
  Serious: Yes (Other)
  Sender: FDA-Public Use
  Company Number: US-PFIZER INC-2014281502

PATIENT
  Age: 55 Year
  Sex: Female
  Weight: 64 kg

DRUGS (7)
  1. XELJANZ [Suspect]
     Active Substance: TOFACITINIB CITRATE
     Dosage: 5 MG, 2X/DAY
     Route: 048
     Dates: start: 201410
  2. EASY ABSORB [Concomitant]
     Indication: CALCIUM DEFICIENCY
     Dosage: 2 DF, 2X/DAY
  3. XELJANZ [Suspect]
     Active Substance: TOFACITINIB CITRATE
     Indication: RHEUMATOID ARTHRITIS
     Dosage: 5 MG, 2X/DAY
     Route: 048
     Dates: end: 20141005
  4. VITAMIN -D [Concomitant]
     Indication: VITAMIN D DECREASED
     Dosage: UNK (10000 EVERY OTHER DAY)
     Dates: start: 2013
  5. PREDNISONE. [Concomitant]
     Active Substance: PREDNISONE
     Dosage: 0.5 MG, DAILY
  6. ALEVE [Concomitant]
     Active Substance: NAPROXEN SODIUM
     Indication: PAIN
     Dosage: 200 MG, 1X/DAY (TAKING AT LEAST TWO YEARS)
  7. EMERGEN-C IMMUNE + [Concomitant]
     Indication: IMMUNE SYSTEM DISORDER
     Dosage: 1 DF, DAILY

REACTIONS (5)
  - Transient ischaemic attack [Recovering/Resolving]
  - Pain [Not Recovered/Not Resolved]
  - Musculoskeletal stiffness [Not Recovered/Not Resolved]
  - Bronchitis [Unknown]
  - Immune system disorder [Unknown]
